FAERS Safety Report 9519560 (Version 1)
Quarter: 2013Q1

REPORT INFORMATION
  Report Type: Spontaneous
  Country: US (occurrence: None)
  Receive Date: 20130305
  Receipt Date: 20130305
  Transmission Date: 20140127
  Serious: Yes (Hospitalization)
  Sender: FDA-Public Use
  Company Number: 163-21880-12010722

PATIENT
  Age: 92 Year
  Sex: Male

DRUGS (3)
  1. REVLIMID (LENALIDOMIDE) (CAPSULES) [Suspect]
     Indication: PLASMA CELL MYELOMA
     Dosage: 15MG-5MG, DAILY, PO
     Route: 048
     Dates: start: 200805, end: 201103
  2. DECADRON [Concomitant]
  3. ANTIBIOTICS (ANTIBIOTICS) (UNKNOWN) [Concomitant]

REACTIONS (4)
  - Lobar pneumonia [None]
  - Pneumonia aspiration [None]
  - Loss of consciousness [None]
  - Blood potassium decreased [None]
